FAERS Safety Report 4377650-4 (Version None)
Quarter: 2004Q2

REPORT INFORMATION
  Report Type: 
  Country: None (occurrence: None)
  Receive Date: 20040601
  Receipt Date: 20040310
  Transmission Date: 20050107
  Serious: No
  Sender: FDA-Public Use
  Company Number: WAES 0401USA01032

PATIENT
  Age: 83 Year
  Sex: Female

DRUGS (6)
  1. ZETIA [Suspect]
     Indication: BLOOD CHOLESTEROL INCREASED
     Dosage: 10 MG/PO
     Route: 048
     Dates: start: 20031014
  2. IMDUR [Concomitant]
  3. LASIX [Concomitant]
  4. MAXZIDE [Concomitant]
  5. SYNTHROID [Concomitant]
  6. POTASSIUM [Concomitant]

REACTIONS (1)
  - PRURITUS GENERALISED [None]
